FAERS Safety Report 16269512 (Version 2)
Quarter: 2020Q2

REPORT INFORMATION
  Report Type: Spontaneous
  Country: US (occurrence: US)
  Receive Date: 20190503
  Receipt Date: 20200412
  Transmission Date: 20200713
  Serious: No
  Sender: FDA-Public Use
  Company Number: US-TEVA-2019-US-1044390

PATIENT
  Sex: Female

DRUGS (1)
  1. OXYBUTYNIN. [Suspect]
     Active Substance: OXYBUTYNIN CHLORIDE
     Dosage: EXTENDED RELEASE 5 MG TABLETS
     Route: 065

REACTIONS (3)
  - Dysuria [Unknown]
  - Drug ineffective [Unknown]
  - Micturition urgency [Unknown]
